FAERS Safety Report 11350368 (Version 1)
Quarter: 2015Q3

REPORT INFORMATION
  Report Type: Spontaneous
  Country: US (occurrence: None)
  Receive Date: 20150805
  Receipt Date: 20150805
  Transmission Date: 20151125
  Serious: No
  Sender: FDA-Public Use
  Company Number: None

PATIENT
  Age: 29 Year
  Sex: Male

DRUGS (14)
  1. FLUCONAZOLE. [Concomitant]
     Active Substance: FLUCONAZOLE
  2. HEPARIN [Concomitant]
     Active Substance: HEPARIN SODIUM
  3. PROMETHAZINE [Concomitant]
     Active Substance: PROMETHAZINE\PROMETHAZINE HYDROCHLORIDE
  4. COLISTIMETHATE [Concomitant]
     Active Substance: COLISTIMETHATE SODIUM
  5. LANSOPRAZOLE. [Concomitant]
     Active Substance: LANSOPRAZOLE
  6. DIPHENHYDRAMINE. [Concomitant]
     Active Substance: DIPHENHYDRAMINE
  7. TIGECYCLINE. [Suspect]
     Active Substance: TIGECYCLINE
     Indication: URINARY TRACT INFECTION
  8. LORAZEPAM. [Concomitant]
     Active Substance: LORAZEPAM
  9. TEMAZEPAM. [Concomitant]
     Active Substance: TEMAZEPAM
  10. TPN [Concomitant]
     Active Substance: AMINO ACIDS\DEXTROSE\ELECTROLYTES NOS\SOYBEAN OIL
  11. ASPIRIN. [Concomitant]
     Active Substance: ASPIRIN
  12. LINEZOLID. [Concomitant]
     Active Substance: LINEZOLID
  13. METHADONE [Concomitant]
     Active Substance: METHADONE HYDROCHLORIDE
  14. ONDANSETRON [Concomitant]
     Active Substance: ONDANSETRON

REACTIONS (1)
  - Nausea [None]

NARRATIVE: CASE EVENT DATE: 20141114
